FAERS Safety Report 9914000 (Version 2)
Quarter: 2014Q1

REPORT INFORMATION
  Report Type: Spontaneous
  Country: US (occurrence: US)
  Receive Date: 20140220
  Receipt Date: 20140320
  Transmission Date: 20141002
  Serious: No
  Sender: FDA-Public Use
  Company Number: US-009507513-1402USA008302

PATIENT
  Sex: Male

DRUGS (12)
  1. THERAPY UNSPECIFIED [Suspect]
     Dosage: UNK
  2. FORADIL [Suspect]
     Indication: ASTHMA
     Dosage: INHALE THE CONTENTS OF 1 CAPSULE DAILY
     Route: 055
     Dates: start: 2009
  3. FORADIL [Suspect]
     Indication: CHRONIC OBSTRUCTIVE PULMONARY DISEASE
  4. ZOCOR [Concomitant]
     Dosage: UNK
  5. IPRATROPIUM BROMIDE (WARRICK) [Concomitant]
     Dosage: UNK
  6. PROSCAR [Concomitant]
     Dosage: UNK
  7. ALBUTEROL [Concomitant]
     Dosage: UNK
  8. COUMADIN [Concomitant]
     Dosage: UNK
  9. FLECAINIDE ACETATE [Concomitant]
     Dosage: UNK
  10. OMEGA-3 MARINE TRIGLYCERIDES [Concomitant]
     Dosage: UNK
  11. ACIPHEX [Concomitant]
     Dosage: UNK
  12. STRESSTABS [Concomitant]
     Dosage: UNK

REACTIONS (1)
  - Dyspnoea [Unknown]
